FAERS Safety Report 8364227-9 (Version None)
Quarter: 2012Q2

REPORT INFORMATION
  Report Type: 
  Country: None (occurrence: None)
  Receive Date: 20120516
  Receipt Date: 20120510
  Transmission Date: 20120825
  Serious: Yes (Other)
  Sender: FDA-Public Use
  Company Number: PHHY2012DE040172

PATIENT

DRUGS (2)
  1. ZOMETA [Suspect]
     Indication: METASTASES TO BONE
     Dosage: 4 MG
     Route: 042
  2. AFINITOR [Suspect]
     Indication: RENAL CELL CARCINOMA
     Dosage: 10 MG PER DAY, INTERRUPTION EVERY THIRD DAY
     Route: 048
     Dates: start: 20110101

REACTIONS (2)
  - MUCOSAL INFLAMMATION [None]
  - OSTEONECROSIS OF JAW [None]
